FAERS Safety Report 8338662-9 (Version None)
Quarter: 2012Q2

REPORT INFORMATION
  Report Type: 
  Country: None (occurrence: None)
  Receive Date: 20120504
  Receipt Date: 20120425
  Transmission Date: 20120825
  Serious: Yes (Other)
  Sender: FDA-Public Use
  Company Number: US-VALEANT-2012VX001978

PATIENT

DRUGS (6)
  1. FLUOROURACIL [Suspect]
     Dosage: DOSE UNIT:2400
     Route: 042
  2. CALCIUM FOLINATE [Suspect]
     Route: 065
  3. CALCIUM FOLINATE [Suspect]
     Dosage: DOSE UNIT:400
     Route: 042
  4. FLUOROURACIL [Suspect]
     Dosage: DOSE UNIT:400
     Route: 040
  5. VORINOSTAT [Suspect]
     Route: 048
  6. ANTIEMETICS AND ANTINAUSEANTS [Concomitant]
     Route: 065

REACTIONS (1)
  - PULMONARY EMBOLISM [None]
